FAERS Safety Report 24859839 (Version 1)
Quarter: 2025Q1

REPORT INFORMATION
  Report Type: Spontaneous
  Country: CN (occurrence: CN)
  Receive Date: 20250119
  Receipt Date: 20250119
  Transmission Date: 20250408
  Serious: Yes (Other)
  Sender: JIANGSU HENGRUI PHARMACEUTICALS CO., LTD.
  Company Number: CN-JIANGSU HENGRUI PHARMACEUTICALS CO., LTD.-H2024001203977

PATIENT
  Age: 64 Year
  Weight: 76 kg

DRUGS (8)
  1. OXALIPLATIN FOR INJECTION [Suspect]
     Active Substance: OXALIPLATIN
     Indication: Colon cancer
  2. OXALIPLATIN FOR INJECTION [Suspect]
     Active Substance: OXALIPLATIN
  3. OXALIPLATIN FOR INJECTION [Suspect]
     Active Substance: OXALIPLATIN
  4. OXALIPLATIN FOR INJECTION [Suspect]
     Active Substance: OXALIPLATIN
  5. CAPECITABINE [Suspect]
     Active Substance: CAPECITABINE
     Indication: Colon cancer
  6. CAPECITABINE [Suspect]
     Active Substance: CAPECITABINE
  7. CAPECITABINE [Suspect]
     Active Substance: CAPECITABINE
  8. CAPECITABINE [Suspect]
     Active Substance: CAPECITABINE

REACTIONS (3)
  - Deep vein thrombosis [Recovering/Resolving]
  - Neuropathy peripheral [Unknown]
  - Gastrointestinal disorder [Unknown]
